FAERS Safety Report 6772901-0 (Version None)
Quarter: 2010Q2

REPORT INFORMATION
  Report Type: 
  Country: None (occurrence: None)
  Receive Date: 20100520
  Receipt Date: 20090317
  Transmission Date: 20101027
  Serious: Yes (Other)
  Sender: FDA-Public Use
  Company Number: 2009184995

PATIENT
  Age: 57 Year
  Sex: Female
  Weight: 85.8 kg

DRUGS (12)
  1. PROVERA [Suspect]
     Indication: HORMONE REPLACEMENT THERAPY
     Dosage: 5 MG ORAL; 5 MG ORAL; 2.5 MG ORAL
     Route: 048
     Dates: start: 19930910, end: 19970101
  2. PROVERA [Suspect]
     Indication: HORMONE REPLACEMENT THERAPY
     Dosage: 5 MG ORAL; 5 MG ORAL; 2.5 MG ORAL
     Route: 048
     Dates: start: 19980101
  3. PROVERA [Suspect]
     Indication: HORMONE REPLACEMENT THERAPY
     Dosage: 5 MG ORAL; 5 MG ORAL; 2.5 MG ORAL
     Route: 048
     Dates: start: 19990202
  4. PREMARIN [Suspect]
     Indication: HORMONE REPLACEMENT THERAPY
     Dosage: 0.625 MG
  5. PREMPRO [Suspect]
     Indication: HORMONE REPLACEMENT THERAPY
     Dosage: 0.625/2.5 MG
     Dates: start: 19970101, end: 20000202
  6. PREMPRO [Suspect]
     Indication: HORMONE REPLACEMENT THERAPY
     Dosage: 0.625/2.5 MG
     Dates: start: 20000401, end: 20020401
  7. ESTRADIOL AND NORGESTIMATE [Suspect]
     Indication: HORMONE REPLACEMENT THERAPY
     Dates: start: 20000202, end: 20000401
  8. CLARINEX [Concomitant]
  9. CLARITIN [Concomitant]
  10. HYDROXYZINE HCL [Concomitant]
  11. DRUG, UNSPECIFIED NASAL SPRAY [Concomitant]
  12. ALPRAZOLAM [Concomitant]

REACTIONS (1)
  - BREAST CANCER FEMALE [None]
